FAERS Safety Report 8094396-X (Version None)
Quarter: 2012Q1

REPORT INFORMATION
  Report Type: 
  Country: None (occurrence: None)
  Receive Date: 20120130
  Receipt Date: 20120123
  Transmission Date: 20120608
  Serious: Yes (Other)
  Sender: FDA-Public Use
  Company Number: US-SANOFI-AVENTIS-2011SA081514

PATIENT
  Age: 61 Year
  Sex: Female
  Weight: 92.98 kg

DRUGS (25)
  1. FUROSEMIDE [Concomitant]
  2. FOLIC ACID [Concomitant]
  3. BUDESONIDE/FORMOTEROL [Concomitant]
     Dosage: 2 PUFFS EVERY 4 HOURS AS NEEDED
  4. LOVAZA [Concomitant]
  5. FORADIL [Concomitant]
     Dosage: 1 PUFF
  6. SINGULAIR [Concomitant]
  7. DUONEB [Concomitant]
     Dosage: 0.5/2MG UP TO 4 X DAY AS NEEDED
  8. ALL OTHER THERAPEUTIC PRODUCTS [Concomitant]
     Dosage: 1 X DAY AS NEEDED
  9. LANTUS [Suspect]
  10. OPTICLICK [Suspect]
  11. REGULAR INSULIN [Concomitant]
     Dosage: 4-12 UNITS
  12. CREON [Concomitant]
     Indication: PANCREATITIS
     Dosage: 4 PILLS A DAY
  13. KETOROLAC TROMETHAMINE [Concomitant]
     Dosage: 3 A DAY AS NEEDED
  14. MULTI-VITAMINS [Concomitant]
  15. MORPHINE [Concomitant]
     Dosage: UP TO 6 PER DAY
  16. PROMETHAZINE [Concomitant]
  17. CYANOCOBALAMIN [Concomitant]
  18. LANTUS [Suspect]
     Dosage: 50-60 UNITS ONCE A DAY
     Route: 058
  19. ALL OTHER THERAPEUTIC PRODUCTS [Concomitant]
  20. CALCIUM CARBONATE [Concomitant]
  21. PULMICORT-100 [Concomitant]
  22. FLOVENT [Concomitant]
     Dosage: 2 PUFFS
  23. ALL OTHER THERAPEUTIC PRODUCTS [Concomitant]
  24. CALCIUM [Concomitant]
  25. LORATADINE [Concomitant]

REACTIONS (4)
  - MEDICATION ERROR [None]
  - DIABETES MELLITUS INADEQUATE CONTROL [None]
  - PANCREATIC INSUFFICIENCY [None]
  - BLOOD GLUCOSE INCREASED [None]
